FAERS Safety Report 20080164 (Version 2)
Quarter: 2021Q4

REPORT INFORMATION
  Report Type: Spontaneous
  Country: US (occurrence: None)
  Receive Date: 20211117
  Receipt Date: 20211221
  Transmission Date: 20220304
  Serious: No
  Sender: FDA-Public Use
  Company Number: 2021A778886

PATIENT
  Age: 713 Month
  Sex: Female
  Weight: 81.6 kg

DRUGS (2)
  1. BEVESPI AEROSPHERE [Suspect]
     Active Substance: FORMOTEROL FUMARATE\GLYCOPYRROLATE
     Indication: Chronic obstructive pulmonary disease
     Dosage: 9/4.8MCG 2 PUFFS TWICE DAILY
     Route: 055
     Dates: start: 201904
  2. BEVESPI AEROSPHERE [Suspect]
     Active Substance: FORMOTEROL FUMARATE\GLYCOPYRROLATE
     Indication: Emphysema
     Dosage: 9/4.8MCG 2 PUFFS TWICE DAILY
     Route: 055
     Dates: start: 201904

REACTIONS (7)
  - Dyspnoea [Recovering/Resolving]
  - Dyspnoea exertional [Recovering/Resolving]
  - Headache [Recovering/Resolving]
  - Product use issue [Recovered/Resolved]
  - Therapeutic product ineffective [Recovering/Resolving]
  - Product dose omission issue [Recovered/Resolved]
  - Device malfunction [Unknown]

NARRATIVE: CASE EVENT DATE: 20211001
